FAERS Safety Report 6126832-X (Version None)
Quarter: 2009Q1

REPORT INFORMATION
  Report Type: 
  Country: None (occurrence: None)
  Receive Date: 20090320
  Receipt Date: 20080717
  Transmission Date: 20090719
  Serious: No
  Sender: FDA-Public Use
  Company Number: US-ABBOTT-08P-163-0464562-00

PATIENT
  Sex: Female
  Weight: 69.008 kg

DRUGS (1)
  1. ERYTHROMYCIN [Suspect]
     Indication: EAR INFECTION

REACTIONS (2)
  - URTICARIA [None]
  - VOMITING [None]
